FAERS Safety Report 11924033 (Version 2)
Quarter: 2016Q1

REPORT INFORMATION
  Report Type: Report from Study
  Country: US (occurrence: US)
  Receive Date: 20160118
  Receipt Date: 20160204
  Transmission Date: 20160526
  Serious: Yes (Hospitalization, Other)
  Sender: FDA-Public Use
  Company Number: US-ROCHE-1694457

PATIENT
  Age: 65 Year
  Sex: Male
  Weight: 83.99 kg

DRUGS (2)
  1. ERIVEDGE [Suspect]
     Active Substance: VISMODEGIB
     Indication: BASAL CELL CARCINOMA
     Dosage: WAS TAKING FOR 6 WEEKS
     Route: 048
     Dates: end: 20160106
  2. LOSARTAN. [Concomitant]
     Active Substance: LOSARTAN
     Indication: BLOOD PRESSURE MEASUREMENT
     Dosage: TAKING FOR 3 MONTHS (BEFORE ERIVEDGE)
     Route: 048

REACTIONS (13)
  - Hypertension [Not Recovered/Not Resolved]
  - Retching [Unknown]
  - Hepatic enzyme increased [Recovering/Resolving]
  - Renal impairment [Not Recovered/Not Resolved]
  - Pain [Unknown]
  - Hypophagia [Not Recovered/Not Resolved]
  - Dyspepsia [Not Recovered/Not Resolved]
  - Urinary tract infection [Unknown]
  - Asthenia [Unknown]
  - Ageusia [Not Recovered/Not Resolved]
  - Nausea [Not Recovered/Not Resolved]
  - Pyrexia [Unknown]
  - Influenza like illness [Unknown]

NARRATIVE: CASE EVENT DATE: 201512
